FAERS Safety Report 14080836 (Version 1)
Quarter: 2017Q4

REPORT INFORMATION
  Report Type: Spontaneous
  Country: US (occurrence: US)
  Receive Date: 20171012
  Receipt Date: 20171012
  Transmission Date: 20180321
  Serious: No
  Sender: FDA-Public Use
  Company Number: US-NOVOPROD-554867

PATIENT
  Age: 57 Year
  Sex: Female
  Weight: 107.48 kg

DRUGS (1)
  1. SAXENDA [Suspect]
     Active Substance: LIRAGLUTIDE
     Indication: WEIGHT DECREASED
     Dosage: UNK
     Route: 058
     Dates: start: 20170525

REACTIONS (3)
  - Nausea [Not Recovered/Not Resolved]
  - Headache [Recovered/Resolved]
  - Weight loss poor [Recovered/Resolved]

NARRATIVE: CASE EVENT DATE: 201705
